FAERS Safety Report 10008569 (Version 1)
Quarter: 2014Q1

REPORT INFORMATION
  Report Type: Spontaneous
  Country: US (occurrence: US)
  Receive Date: 20140313
  Receipt Date: 20140313
  Transmission Date: 20141002
  Serious: No
  Sender: FDA-Public Use
  Company Number: US-TEVA-466400USA

PATIENT
  Sex: 0

DRUGS (2)
  1. COPAXONE [Suspect]
  2. ALCOHOL [Interacting]

REACTIONS (2)
  - Alcohol interaction [Unknown]
  - Syncope [Unknown]
